FAERS Safety Report 24397421 (Version 1)
Quarter: 2024Q4

REPORT INFORMATION
  Report Type: Spontaneous
  Country: US (occurrence: US)
  Receive Date: 20241004
  Receipt Date: 20241004
  Transmission Date: 20250115
  Serious: No
  Sender: SUNOVION
  Company Number: US-SMPA-2024SPA003322AA

PATIENT

DRUGS (2)
  1. ORGOVYX [Suspect]
     Active Substance: RELUGOLIX
     Indication: Prostate cancer
     Dosage: UNK
     Route: 048
     Dates: start: 20240620, end: 20240902
  2. ORGOVYX [Suspect]
     Active Substance: RELUGOLIX
     Dosage: 30 TABLETS, 11 REFILLS
     Route: 048
     Dates: start: 20230714, end: 20240905

REACTIONS (1)
  - Urticaria [Unknown]
